FAERS Safety Report 5036467-8 (Version None)
Quarter: 2006Q2

REPORT INFORMATION
  Report Type: 
  Country: None (occurrence: None)
  Receive Date: 20060626
  Receipt Date: 20060609
  Transmission Date: 20061013
  Serious: Yes (Death, Hospitalization)
  Sender: FDA-Public Use
  Company Number: MPS1-10505

PATIENT
  Age: 4 Year
  Sex: Male
  Weight: 16.3 kg

DRUGS (3)
  1. ALDURAZYME [Suspect]
     Indication: MUCOPOLYSACCHARIDOSIS IH
     Dosage: 14.5 MG QWK IV
     Route: 042
     Dates: start: 20051123, end: 20060317
  2. ALDURAZYME [Suspect]
     Indication: MUCOPOLYSACCHARIDOSIS IH
     Dates: start: 20030227, end: 20051123
  3. VENTOLIN [Concomitant]

REACTIONS (13)
  - BRADYCARDIA [None]
  - BRONCHOPNEUMONIA [None]
  - BRONCHOPNEUMOPATHY [None]
  - CARDIAC ARREST [None]
  - CONDITION AGGRAVATED [None]
  - DISEASE PROGRESSION [None]
  - HYPERCAPNIA [None]
  - MUCOPOLYSACCHARIDOSIS IH [None]
  - OBSTRUCTIVE AIRWAYS DISORDER [None]
  - RESPIRATORY FAILURE [None]
  - RESPIRATORY SYNCYTIAL VIRUS INFECTION [None]
  - RESPIRATORY TRACT INFECTION [None]
  - SWOLLEN TONGUE [None]
